FAERS Safety Report 5829628-9 (Version None)
Quarter: 2008Q3

REPORT INFORMATION
  Report Type: 
  Country: None (occurrence: None)
  Receive Date: 20080731
  Receipt Date: 20080721
  Transmission Date: 20090109
  Serious: Yes (Other)
  Sender: FDA-Public Use
  Company Number: DE-PFIZER INC-2008060860

PATIENT
  Sex: Male

DRUGS (4)
  1. UNACID INJECTION [Suspect]
     Indication: POSTOPERATIVE CARE
     Route: 042
  2. VALPROATE SODIUM [Concomitant]
  3. ALL OTHER THERAPEUTIC PRODUCTS [Concomitant]
  4. CORTISONE [Concomitant]

REACTIONS (1)
  - PULMONARY FIBROSIS [None]
